FAERS Safety Report 12404911 (Version 1)
Quarter: 2016Q2

REPORT INFORMATION
  Report Type: Spontaneous
  Country: US (occurrence: US)
  Receive Date: 20160525
  Receipt Date: 20160525
  Transmission Date: 20160815
  Serious: No
  Sender: FDA-Public Use
  Company Number: US-PFIZER INC-2016207893

PATIENT

DRUGS (1)
  1. CELECOXIB. [Suspect]
     Active Substance: CELECOXIB
     Dosage: 100 MG, UNK

REACTIONS (6)
  - Rash [Unknown]
  - Swelling [Unknown]
  - Burning sensation [Unknown]
  - Joint swelling [Unknown]
  - Peripheral swelling [Unknown]
  - Hypersensitivity [Unknown]
